FAERS Safety Report 23746836 (Version 1)
Quarter: 2024Q2

REPORT INFORMATION
  Report Type: Spontaneous
  Country: CA (occurrence: CA)
  Receive Date: 20240416
  Receipt Date: 20240416
  Transmission Date: 20240716
  Serious: Yes (Life-Threatening, Hospitalization)
  Sender: FDA-Public Use
  Company Number: CA-AMGEN-CANSP2024071926

PATIENT
  Age: 67 Year
  Sex: Female
  Weight: 101 kg

DRUGS (8)
  1. KYPROLIS [Suspect]
     Active Substance: CARFILZOMIB
     Indication: Plasma cell myeloma
     Dosage: 137 MILLIGRAM, QWK
     Route: 042
  2. HYDROMORPHONE [Concomitant]
     Active Substance: HYDROMORPHONE
     Dosage: UNK
  3. MELATONIN [Concomitant]
     Active Substance: MELATONIN
     Dosage: UNK
  4. PANTOPRAZOLE [Concomitant]
     Active Substance: PANTOPRAZOLE
     Dosage: UNK
  5. POTASSIUM CHLORIDE [Concomitant]
     Active Substance: POTASSIUM CHLORIDE
     Dosage: UNK
  6. PREGABALIN [Concomitant]
     Active Substance: PREGABALIN
     Dosage: UNK
  7. VALACYCLOVIR [Concomitant]
     Active Substance: VALACYCLOVIR HYDROCHLORIDE
     Dosage: UNK
  8. VITAMIN D [Concomitant]
     Active Substance: VITAMIN D NOS
     Dosage: UNK

REACTIONS (9)
  - Cytokine storm [Recovering/Resolving]
  - Asthenia [Recovering/Resolving]
  - Acute kidney injury [Recovering/Resolving]
  - Dialysis [Recovering/Resolving]
  - Hypoperfusion [Recovering/Resolving]
  - Nausea [Recovering/Resolving]
  - Renal tubular necrosis [Recovering/Resolving]
  - Shock [Recovering/Resolving]
  - Vomiting [Recovering/Resolving]
